FAERS Safety Report 15561466 (Version 1)
Quarter: 2018Q4

REPORT INFORMATION
  Report Type: Spontaneous
  Country: US (occurrence: US)
  Receive Date: 20181028
  Receipt Date: 20181028
  Transmission Date: 20190205
  Serious: No
  Sender: FDA-Public Use
  Company Number: None

PATIENT
  Age: 67 Year
  Sex: Female
  Weight: 76.5 kg

DRUGS (2)
  1. FLEXALL420 (CANNABIDIOL) [Suspect]
     Active Substance: CANNABIDIOL\HERBALS
     Indication: ARTHRALGIA
     Dosage: ?          OTHER STRENGTH:2 OZ;QUANTITY:1 OUNCE(S);?
     Route: 061
     Dates: start: 20181020, end: 20181025
  2. FLEXALL420 (CANNABIDIOL) [Suspect]
     Active Substance: CANNABIDIOL\HERBALS
     Indication: BACK PAIN
     Dosage: ?          OTHER STRENGTH:2 OZ;QUANTITY:1 OUNCE(S);?
     Route: 061
     Dates: start: 20181020, end: 20181025

REACTIONS (5)
  - Urticaria [None]
  - Application site rash [None]
  - Allergic reaction to excipient [None]
  - Swelling [None]
  - Application site pruritus [None]

NARRATIVE: CASE EVENT DATE: 20181025
